FAERS Safety Report 5809677-7 (Version None)
Quarter: 2008Q3

REPORT INFORMATION
  Report Type: 
  Country: None (occurrence: None)
  Receive Date: 20080709
  Receipt Date: 20080625
  Transmission Date: 20090109
  Serious: Yes (Death, Other)
  Sender: FDA-Public Use
  Company Number: 2008AL007863

PATIENT
  Age: 35 Year
  Sex: Male

DRUGS (4)
  1. DIAZEPAM [Suspect]
     Dosage: QD; PO
     Route: 048
  2. PAREGORIC LIQUID USP [Suspect]
     Dosage: QD
  3. FEVERALL [Suspect]
     Dosage: PO
     Route: 048
  4. ETHANOL [Concomitant]

REACTIONS (2)
  - DRUG ABUSE [None]
  - THERAPEUTIC AGENT TOXICITY [None]
